FAERS Safety Report 11617572 (Version 3)
Quarter: 2018Q2

REPORT INFORMATION
  Report Type: Report from Study
  Country: PT (occurrence: DE)
  Receive Date: 20151009
  Receipt Date: 20180423
  Transmission Date: 20180711
  Serious: Yes (Death, Other)
  Sender: FDA-Public Use
  Company Number: DE-SUNOVION-2015SUN000471

PATIENT

DRUGS (12)
  1. OXYGEN. [Concomitant]
     Active Substance: OXYGEN
     Indication: LUNG DISORDER
     Dosage: 50 L, DAILY
     Route: 055
     Dates: start: 2009, end: 20150823
  2. ALENDRON [Concomitant]
     Active Substance: ALENDRONATE SODIUM
     Indication: OSTEOPOROSIS
     Dosage: 10 MG, EVERY WEEK
     Route: 048
     Dates: start: 20130121
  3. LEVETIRACETAM. [Concomitant]
     Active Substance: LEVETIRACETAM
     Dosage: 1500 MG, BID
     Route: 048
     Dates: start: 20130513, end: 20150708
  4. LEVETIRACETAM. [Concomitant]
     Active Substance: LEVETIRACETAM
     Dosage: 500 DF, BID
     Route: 048
     Dates: start: 20150811, end: 20150823
  5. IBUPROFEN                          /00109205/ [Concomitant]
     Active Substance: IBUPROFEN
     Indication: SPINAL DISORDER
     Dosage: 1800 MG, EVERY WEEK
     Route: 048
     Dates: start: 20130328
  6. LEVETIRACETAM. [Concomitant]
     Active Substance: LEVETIRACETAM
     Dosage: 1000 MG, BID
     Route: 048
     Dates: start: 20150709, end: 20150810
  7. ZEBINIX [Suspect]
     Active Substance: ESLICARBAZEPINE ACETATE
     Indication: EPILEPSY
     Dosage: 400 MG, QD
     Route: 048
  8. ESOMEPRAZOL                        /01479301/ [Concomitant]
     Active Substance: ESOMEPRAZOLE
     Indication: GASTRIC DISORDER
     Dosage: 20 MG, DAILY
     Route: 048
     Dates: start: 20130516, end: 20150823
  9. ZEBINIX [Suspect]
     Active Substance: ESLICARBAZEPINE ACETATE
     Dosage: 800 MG, DAILY
     Route: 048
     Dates: start: 20150729, end: 20150823
  10. SPIRONOLACTONE. [Concomitant]
     Active Substance: SPIRONOLACTONE
     Indication: LUNG DISORDER
     Dosage: 100 MG, DAILY
     Route: 048
     Dates: start: 20091126, end: 20150823
  11. CALCIUM + VITAMIN D3 [Concomitant]
     Active Substance: CALCIUM CARBONATE\CHOLECALCIFEROL
     Indication: OSTEOPOROSIS
     Dosage: 1000 MG, DAILY
     Route: 048
     Dates: start: 20091213, end: 20150823
  12. CALCILAC [Concomitant]
     Active Substance: CALCIUM CARBONATE
     Dosage: 1000 MG, UNKNOWN
     Route: 048
     Dates: start: 20091013

REACTIONS (1)
  - Pneumonia [Fatal]

NARRATIVE: CASE EVENT DATE: 20150823
